FAERS Safety Report 12661707 (Version 2)
Quarter: 2017Q1

REPORT INFORMATION
  Report Type: Spontaneous
  Country: US (occurrence: US)
  Receive Date: 20160817
  Receipt Date: 20170215
  Transmission Date: 20170428
  Serious: Yes (Hospitalization, Other)
  Sender: FDA-Public Use
  Company Number: US-MYLANLABS-2016M1034646

PATIENT

DRUGS (20)
  1. LUPRON [Suspect]
     Active Substance: LEUPROLIDE ACETATE
     Indication: PROSTATE CANCER
     Dosage: UNK, MONTHLY
     Route: 030
  2. CARTIA XT [Concomitant]
     Active Substance: DILTIAZEM HYDROCHLORIDE
     Dosage: UNK
     Dates: start: 20151014
  3. ATROPINE SULFATE W/DIPHENHYDRAMINE HYDROCHLOR [Concomitant]
     Dosage: 2.5-0.25MG
     Dates: start: 20160318
  4. FLOMAX [Concomitant]
     Active Substance: TAMSULOSIN HYDROCHLORIDE
     Dosage: UNK
     Dates: start: 20151013
  5. TRAMADOL HYDROCHLORIDE. [Concomitant]
     Active Substance: TRAMADOL HYDROCHLORIDE
     Dosage: UNK
     Dates: start: 20160425
  6. JAKAFI [Suspect]
     Active Substance: RUXOLITINIB
     Indication: MYELOFIBROSIS
     Dosage: 15 MG, BID
     Route: 048
     Dates: start: 201412, end: 201511
  7. CARDIZEM [Concomitant]
     Active Substance: DILTIAZEM HYDROCHLORIDE
     Dosage: UNK MG, UNK
  8. LEVOFLOXACIN. [Concomitant]
     Active Substance: LEVOFLOXACIN
     Dosage: UNK
     Dates: start: 20160414
  9. PANTOPRAZOLE SODIUM SESQUIHYDRATE [Concomitant]
     Active Substance: PANTOPRAZOLE SODIUM
     Dosage: UNK
     Dates: start: 20150107
  10. MUPIROCIN. [Concomitant]
     Active Substance: MUPIROCIN
     Indication: PRODUCT USED FOR UNKNOWN INDICATION
     Dosage: UNK
  11. JAKAFI [Suspect]
     Active Substance: RUXOLITINIB
     Dosage: 10 MG, BID
     Route: 048
     Dates: start: 20151013
  12. ALPRAZOLAM. [Concomitant]
     Active Substance: ALPRAZOLAM
     Dosage: UNK
     Dates: start: 20150110
  13. XANAX [Concomitant]
     Active Substance: ALPRAZOLAM
     Indication: PRODUCT USED FOR UNKNOWN INDICATION
     Dosage: UNK
  14. IMBRUVICA [Suspect]
     Active Substance: IBRUTINIB
     Dosage: 140 MG, TID
     Route: 048
     Dates: start: 20160219, end: 20160729
  15. JAKAFI [Suspect]
     Active Substance: RUXOLITINIB
     Dosage: 10MG
     Route: 048
     Dates: start: 20160801
  16. FUROSEMIDE. [Concomitant]
     Active Substance: FUROSEMIDE
     Dosage: UNK
     Dates: start: 20160425
  17. ALLOPURINOL. [Concomitant]
     Active Substance: ALLOPURINOL
     Indication: PRODUCT USED FOR UNKNOWN INDICATION
     Dosage: UNK
  18. INDOMETACIN [Suspect]
     Active Substance: INDOMETHACIN
     Indication: GOUT
     Dosage: UNK
  19. JAKAFI [Suspect]
     Active Substance: RUXOLITINIB
     Dosage: 5 MG, BID
     Route: 048
     Dates: start: 201511
  20. VENLAFAXINE [Suspect]
     Active Substance: VENLAFAXINE HYDROCHLORIDE
     Indication: HOT FLUSH
     Dosage: UNK

REACTIONS (28)
  - Prostatic acid phosphatase increased [Unknown]
  - Peripheral swelling [Unknown]
  - Pain in extremity [Unknown]
  - Ear pain [Unknown]
  - Faeces discoloured [Unknown]
  - Ulcer [Unknown]
  - Muscle spasms [Unknown]
  - Lymphadenopathy [Unknown]
  - Gout [Unknown]
  - Night sweats [Unknown]
  - Gastrointestinal haemorrhage [Unknown]
  - Basal cell carcinoma [Unknown]
  - Fatigue [Unknown]
  - Mass [Not Recovered/Not Resolved]
  - Oedema peripheral [Not Recovered/Not Resolved]
  - Chest pain [Recovered/Resolved]
  - Platelet count decreased [Recovering/Resolving]
  - Haemoglobin decreased [Unknown]
  - Oedema [Not Recovered/Not Resolved]
  - Diarrhoea [Unknown]
  - Melaena [Unknown]
  - White blood cell count increased [Unknown]
  - Thrombocytopenia [Recovering/Resolving]
  - Prostate cancer recurrent [Unknown]
  - Dyspnoea [Recovered/Resolved]
  - Iron deficiency anaemia [Unknown]
  - Blood uric acid increased [Unknown]
  - Weight increased [Unknown]

NARRATIVE: CASE EVENT DATE: 2015
